FAERS Safety Report 5722875-6 (Version None)
Quarter: 2008Q2

REPORT INFORMATION
  Report Type: 
  Country: None (occurrence: None)
  Receive Date: 20080425
  Receipt Date: 20080415
  Transmission Date: 20081010
  Serious: Yes (Hospitalization, Other)
  Sender: FDA-Public Use
  Company Number: 2008-01169

PATIENT
  Age: 79 Year
  Sex: Female

DRUGS (6)
  1. VELCADE [Suspect]
     Indication: MULTIPLE MYELOMA
     Dosage: 1.3 MG/M2, 1 MG/M2
     Dates: start: 20080129, end: 20080205
  2. VELCADE [Suspect]
     Indication: MULTIPLE MYELOMA
     Dosage: 1.3 MG/M2, 1 MG/M2
     Dates: start: 20080208
  3. MELPHALAN [Concomitant]
  4. PREDNISONE TAB [Concomitant]
  5. VITAMIN B12 [Concomitant]
  6. AREDIA [Concomitant]

REACTIONS (11)
  - ABDOMINAL PAIN [None]
  - ASTHENIA [None]
  - CONSTIPATION [None]
  - DIARRHOEA HAEMORRHAGIC [None]
  - DYSSTASIA [None]
  - FATIGUE [None]
  - INTESTINAL ISCHAEMIA [None]
  - MALAISE [None]
  - NO THERAPEUTIC RESPONSE [None]
  - PALLOR [None]
  - SKIN CANCER [None]
